FAERS Safety Report 17868304 (Version 2)
Quarter: 2020Q2

REPORT INFORMATION
  Report Type: Spontaneous
  Country: ES (occurrence: ES)
  Receive Date: 20200606
  Receipt Date: 20200612
  Transmission Date: 20200714
  Serious: Yes (Other)
  Sender: FDA-Public Use
  Company Number: ES-AUROBINDO-AUR-APL-2020-026917

PATIENT
  Age: 41 Year
  Sex: Male

DRUGS (4)
  1. RIFAMPICIN [Suspect]
     Active Substance: RIFAMPIN
     Indication: STAPHYLOCOCCAL INFECTION
     Dosage: 600 MILLIGRAM, DAILY
     Route: 065
  2. SEVOFLURANE. [Suspect]
     Active Substance: SEVOFLURANE
     Indication: WOUND TREATMENT
     Dosage: 4 MILLILITER, IRRIGATION FOR 4-5 MINUTES
     Route: 061
  3. LEVOFLOXACIN. [Suspect]
     Active Substance: LEVOFLOXACIN
     Indication: STAPHYLOCOCCAL INFECTION
     Dosage: 500 MILLIGRAM, DAILY
     Route: 065
  4. SEVOFLURANE. [Suspect]
     Active Substance: SEVOFLURANE
     Indication: STAPHYLOCOCCAL INFECTION
     Dosage: 5 MILLILITER, ONCE A DAY
     Route: 061

REACTIONS (3)
  - Drug ineffective [Recovered/Resolved]
  - Treatment noncompliance [Unknown]
  - Off label use [Unknown]
